FAERS Safety Report 8076541-5 (Version None)
Quarter: 2011Q4

REPORT INFORMATION
  Report Type: 
  Country: None (occurrence: None)
  Receive Date: 20111221
  Receipt Date: 20110919
  Transmission Date: 20120403
  Serious: Yes (Other)
  Sender: FDA-Public Use
  Company Number: PHHY2010US33047

PATIENT
  Age: 74 Year
  Sex: Female

DRUGS (2)
  1. REVLIMID [Concomitant]
  2. EXJADE [Suspect]
     Indication: IRON METABOLISM DISORDER
     Dosage: 1000 MG, QD, ORAL
     Route: 048

REACTIONS (20)
  - MALAISE [None]
  - DRY SKIN [None]
  - DYSPHAGIA [None]
  - ABDOMINAL PAIN [None]
  - DIZZINESS [None]
  - ASTHENIA [None]
  - WEIGHT DECREASED [None]
  - FEELING ABNORMAL [None]
  - SOMNOLENCE [None]
  - HAEMATOCHEZIA [None]
  - BALANCE DISORDER [None]
  - RASH [None]
  - DRY EYE [None]
  - DECREASED APPETITE [None]
  - VOMITING [None]
  - DIARRHOEA [None]
  - NERVOUSNESS [None]
  - SKIN WRINKLING [None]
  - DYSPNOEA [None]
  - FATIGUE [None]
